FAERS Safety Report 4360638-7 (Version None)
Quarter: 2004Q2

REPORT INFORMATION
  Report Type: 
  Country: None (occurrence: None)
  Receive Date: 20040519
  Receipt Date: 20040519
  Transmission Date: 20050107
  Serious: Yes (Hospitalization)
  Sender: FDA-Public Use
  Company Number: None

PATIENT
  Sex: Male
  Weight: 10.4327 kg

DRUGS (2)
  1. BACTRIM [Suspect]
     Indication: RENAL DISORDER
     Dosage: 1/2 TSP
     Dates: start: 20030107, end: 20040415
  2. ROCEPHIN [Concomitant]

REACTIONS (8)
  - APPENDICITIS [None]
  - BACTERIA STOOL IDENTIFIED [None]
  - DEHYDRATION [None]
  - DIARRHOEA [None]
  - GASTROENTERITIS VIRAL [None]
  - PYREXIA [None]
  - TREATMENT NONCOMPLIANCE [None]
  - VOMITING [None]
